FAERS Safety Report 6401659-X (Version None)
Quarter: 2009Q4

REPORT INFORMATION
  Report Type: 
  Country: None (occurrence: None)
  Receive Date: 20091015
  Receipt Date: 20091006
  Transmission Date: 20100525
  Serious: Yes (Hospitalization)
  Sender: FDA-Public Use
  Company Number: JP-SP-2009-03670

PATIENT
  Age: 70 Year
  Sex: Male

DRUGS (4)
  1. IMMUCYST [Suspect]
     Indication: BLADDER CANCER
     Route: 043
     Dates: start: 20090704, end: 20090806
  2. IMMUCYST [Suspect]
     Route: 043
     Dates: start: 20090704, end: 20090806
  3. LEVOFLOXACIN [Concomitant]
     Dates: start: 20090811, end: 20090817
  4. SOLIFENACIN SUCCINATE [Concomitant]
     Dates: start: 20090811, end: 20090817

REACTIONS (7)
  - BLADDER IRRITATION [None]
  - BLADDER TAMPONADE [None]
  - CYSTITIS NONINFECTIVE [None]
  - HAEMATOMA [None]
  - HAEMATURIA [None]
  - HAEMOSTASIS [None]
  - URINARY BLADDER RUPTURE [None]
